FAERS Safety Report 19015802 (Version 2)
Quarter: 2021Q1

REPORT INFORMATION
  Report Type: Report from Study
  Country: CL (occurrence: CL)
  Receive Date: 20210316
  Receipt Date: 20210324
  Transmission Date: 20210420
  Serious: Yes (Hospitalization)
  Sender: FDA-Public Use
  Company Number: CL-EISAI MEDICAL RESEARCH-EC-2021-089554

PATIENT
  Age: 50 Year
  Sex: Female

DRUGS (1)
  1. LENVATINIB [Suspect]
     Active Substance: LENVATINIB
     Indication: ADENOCARCINOMA
     Dosage: UNKNOWN
     Route: 048

REACTIONS (1)
  - Respiratory failure [Recovering/Resolving]

NARRATIVE: CASE EVENT DATE: 20210304
